FAERS Safety Report 6588980-X (Version None)
Quarter: 2010Q1

REPORT INFORMATION
  Report Type: 
  Country: None (occurrence: None)
  Receive Date: 20100212
  Receipt Date: 20100126
  Transmission Date: 20100710
  Serious: Yes (Death)
  Sender: FDA-Public Use
  Company Number: 006020

PATIENT
  Age: 74 Year
  Sex: Male

DRUGS (8)
  1. OMEPRAZOLE [Suspect]
     Dosage: (20 MG ORAL)
     Route: 048
  2. SIMVASTATIN [Suspect]
     Dosage: (ORAL)
     Route: 048
  3. IBUPROFEN [Suspect]
     Dosage: (ORAL)
     Route: 048
  4. PERINDOPRIL ERBUMINE [Suspect]
     Dosage: (8 MG ORAL)
     Route: 048
  5. ASPIRIN /01428701/ (ASPIRIN ) (NOT SPECIFIED) [Suspect]
     Dosage: (75 MG ORAL)
     Route: 048
  6. AMLODIPINE [Suspect]
     Dosage: (5 MG ORAL)
     Route: 048
  7. LEVOTHYROXINE SODIUM [Concomitant]
  8. AMOXICILLIN TRIHYDRATE [Concomitant]

REACTIONS (16)
  - ACUTE RESPIRATORY DISTRESS SYNDROME [None]
  - ALVEOLITIS [None]
  - COUGH [None]
  - DECREASED APPETITE [None]
  - DERMATOMYOSITIS [None]
  - DRUG ERUPTION [None]
  - GENERAL PHYSICAL HEALTH DETERIORATION [None]
  - HAEMOPTYSIS [None]
  - LOWER RESPIRATORY TRACT INFECTION [None]
  - MUSCULAR WEAKNESS [None]
  - OROPHARYNGEAL PAIN [None]
  - RASH [None]
  - RENAL FAILURE ACUTE [None]
  - RENAL TUBULAR NECROSIS [None]
  - RESPIRATORY FAILURE [None]
  - WEIGHT DECREASED [None]
